FAERS Safety Report 24585326 (Version 1)
Quarter: 2024Q4

REPORT INFORMATION
  Report Type: Spontaneous
  Country: KR (occurrence: KR)
  Receive Date: 20241106
  Receipt Date: 20241106
  Transmission Date: 20250115
  Serious: Yes (Other)
  Sender: INCYTE
  Company Number: KR-002147023-NVSC2024KR214095

PATIENT

DRUGS (1)
  1. RUXOLITINIB [Suspect]
     Active Substance: RUXOLITINIB
     Indication: Primary myelofibrosis
     Dosage: 40 MG, QD
     Route: 065
     Dates: start: 2024

REACTIONS (2)
  - Tuberculosis [Unknown]
  - Pulmonary cavitation [Unknown]
